FAERS Safety Report 18756560 (Version 1)
Quarter: 2021Q1

REPORT INFORMATION
  Report Type: Spontaneous
  Country: JP (occurrence: JP)
  Receive Date: 20210119
  Receipt Date: 20210119
  Transmission Date: 20210419
  Serious: Yes (Hospitalization)
  Sender: FDA-Public Use
  Company Number: JP-LUPIN PHARMACEUTICALS INC.-2021-00287

PATIENT
  Age: 60 Year
  Sex: Female

DRUGS (2)
  1. POTASSIUM CHLORIDE. [Suspect]
     Active Substance: POTASSIUM CHLORIDE
     Indication: HYPOVOLAEMIC SHOCK
     Dosage: UNK, HYPERTONIC BECAUSE OF ITS HIGH POTASSIUM CONCENTRATION: NA+ 110 MEQ/L, AND K+ 147 MEQ/L, IN A T
     Route: 042
  2. ISOTONIC SODIUM CHLORIDE SOLUTION [Suspect]
     Active Substance: SODIUM CHLORIDE
     Indication: HYPOVOLAEMIC SHOCK
     Dosage: UNK, HYPERTONIC BECAUSE OF ITS HIGH POTASSIUM CONCENTRATION: NA+ 110 MEQ/L, AND K+ 147 MEQ/L, IN A T
     Route: 042

REACTIONS (1)
  - Hypernatraemia [Recovered/Resolved]
